FAERS Safety Report 9004327 (Version 1)
Quarter: 2013Q1

REPORT INFORMATION
  Report Type: Spontaneous
  Country: US (occurrence: None)
  Receive Date: 20130104
  Receipt Date: 20130104
  Transmission Date: 20140127
  Serious: No
  Sender: FDA-Public Use
  Company Number: None

PATIENT
  Age: 72 Year
  Sex: Female
  Weight: 100.25 kg

DRUGS (1)
  1. COLGATE TOTAL TOOTHPASTE [Suspect]
     Dosage: USE IT 2 TIMES DAY

REACTIONS (4)
  - Oral discomfort [None]
  - Dysgeusia [None]
  - Dysgeusia [None]
  - Oral pain [None]
